FAERS Safety Report 18891505 (Version 1)
Quarter: 2021Q1

REPORT INFORMATION
  Report Type: Spontaneous
  Country: IN (occurrence: IN)
  Receive Date: 20210215
  Receipt Date: 20210215
  Transmission Date: 20210420
  Serious: Yes (Hospitalization, Other)
  Sender: FDA-Public Use
  Company Number: IN-LUPIN PHARMACEUTICALS INC.-2021-01602

PATIENT
  Age: 5 Year
  Sex: Male

DRUGS (1)
  1. PHENYTOIN SODIUM. [Suspect]
     Active Substance: PHENYTOIN SODIUM
     Indication: PRODUCT USED FOR UNKNOWN INDICATION
     Dosage: 20 DOSAGE FORM, THE CHILD HAD ACCIDENTALLY CONSUMED 100 MG PHENYTOIN TABLETS
     Route: 048

REACTIONS (7)
  - Accidental exposure to product by child [Unknown]
  - Accidental overdose [Unknown]
  - Prescription drug used without a prescription [Unknown]
  - Toxicity to various agents [Unknown]
  - Dystonia [Recovered/Resolved]
  - Balance disorder [Recovered/Resolved]
  - Somnolence [Recovered/Resolved]
